FAERS Safety Report 9836901 (Version 1)
Quarter: 2014Q1

REPORT INFORMATION
  Report Type: Spontaneous
  Country: US (occurrence: US)
  Receive Date: 20140123
  Receipt Date: 20140123
  Transmission Date: 20141002
  Serious: No
  Sender: FDA-Public Use
  Company Number: US-PFIZER INC-2014019245

PATIENT
  Age: 55 Year
  Sex: Male
  Weight: 74.38 kg

DRUGS (2)
  1. GABAPENTIN [Suspect]
     Indication: BACK DISORDER
     Dosage: UNK, 1X/DAY
     Route: 048
     Dates: start: 201310, end: 201312
  2. GABAPENTIN [Suspect]
     Indication: BACK PAIN

REACTIONS (3)
  - Off label use [Unknown]
  - Hypersensitivity [Unknown]
  - Pruritus [Recovered/Resolved]
